FAERS Safety Report 8908571 (Version 1)
Quarter: 2012Q4

REPORT INFORMATION
  Report Type: Report from Study
  Country: US (occurrence: US)
  Receive Date: 20121114
  Receipt Date: 20121114
  Transmission Date: 20130627
  Serious: Yes (Hospitalization)
  Sender: FDA-Public Use
  Company Number: US-ROCHE-1155260

PATIENT
  Age: 65 Year
  Sex: Female
  Weight: 54.03 kg

DRUGS (1)
  1. CAPECITABINE [Suspect]
     Indication: BREAST CANCER STAGE IV
     Route: 048
     Dates: start: 20120925, end: 201210

REACTIONS (5)
  - Intestinal obstruction [Recovered/Resolved]
  - Weight decreased [Recovered/Resolved]
  - Constipation [Recovered/Resolved]
  - Vomiting [Recovered/Resolved]
  - Diarrhoea [Recovered/Resolved]
